FAERS Safety Report 8322077-3 (Version None)
Quarter: 2012Q2

REPORT INFORMATION
  Report Type: 
  Country: None (occurrence: None)
  Receive Date: 20120430
  Receipt Date: 20091208
  Transmission Date: 20120825
  Serious: No
  Sender: FDA-Public Use
  Company Number: US-TEVA-2009029563

PATIENT
  Age: 15 Year
  Sex: Female

DRUGS (1)
  1. NUVIGIL [Suspect]
     Indication: ATTENTION DEFICIT/HYPERACTIVITY DISORDER
     Route: 048
     Dates: start: 20091201

REACTIONS (3)
  - DECREASED APPETITE [None]
  - DRUG PRESCRIBING ERROR [None]
  - INSOMNIA [None]
